FAERS Safety Report 9162965 (Version 1)
Quarter: 2012Q4

REPORT INFORMATION
  Report Type: 
  Country: US (occurrence: US)
  Receive Date: 20121219
  Receipt Date: 20121219
  Transmission Date: 20130627
  Serious: Yes (Hospitalization)
  Sender: FDA-Public Use
  Company Number: US-RB-047743-12

PATIENT
  Age: 23 Year
  Sex: Male
  Weight: 47 kg

DRUGS (3)
  1. SUBOXONE [Suspect]
     Indication: DRUG DEPENDENCE
     Dosage: Dosing details not provided
     Route: 060
     Dates: end: 2011
  2. BUPRENORPHINE [Suspect]
     Dosage: Dosing details not provided
     Route: 060
     Dates: start: 2011
  3. BUPRENORPHINE [Suspect]
     Indication: DRUG DEPENDENCE
     Dosage: Increase to 32 mg/daily
     Route: 060

REACTIONS (6)
  - Electrolyte imbalance [Recovered/Resolved]
  - Drug dependence [Unknown]
  - Headache [Recovered/Resolved]
  - Infrequent bowel movements [Not Recovered/Not Resolved]
  - Constipation [Not Recovered/Not Resolved]
  - Weight decreased [Unknown]
